FAERS Safety Report 8477389-X (Version None)
Quarter: 2012Q2

REPORT INFORMATION
  Report Type: 
  Country: None (occurrence: None)
  Receive Date: 20120629
  Receipt Date: 20120620
  Transmission Date: 20120825
  Serious: Yes (Other)
  Sender: FDA-Public Use
  Company Number: US-SANOFI-AVENTIS-2012SA044728

PATIENT
  Age: 85 Year
  Sex: Female
  Weight: 54.5 kg

DRUGS (1)
  1. PLAVIX [Suspect]
     Route: 048
     Dates: start: 20110101

REACTIONS (2)
  - HAEMORRHOIDS [None]
  - BLADDER PROLAPSE [None]
